FAERS Safety Report 13965640 (Version 3)
Quarter: 2018Q1

REPORT INFORMATION
  Report Type: Spontaneous
  Country: ES (occurrence: ES)
  Receive Date: 20170913
  Receipt Date: 20180206
  Transmission Date: 20180508
  Serious: Yes (Hospitalization)
  Sender: FDA-Public Use
  Company Number: ES-PFIZER INC-2017391430

PATIENT
  Age: 52 Year
  Sex: Female

DRUGS (2)
  1. METOTREXATO WYETH [Suspect]
     Active Substance: METHOTREXATE SODIUM
     Indication: PSORIATIC ARTHROPATHY
     Dosage: 2.5 MG, 6X/WEEK (2.5 MG EVERY 1.17 DAYS)
     Route: 048
     Dates: start: 20100901
  2. REMICADE [Interacting]
     Active Substance: INFLIXIMAB
     Indication: PSORIATIC ARTHROPATHY
     Dosage: 220 MG, EVERY 8 WEEKS
     Route: 042
     Dates: start: 20100901

REACTIONS (2)
  - Drug interaction [Recovered/Resolved]
  - Gastroenteritis salmonella [Recovered/Resolved]

NARRATIVE: CASE EVENT DATE: 20170702
